FAERS Safety Report 16340551 (Version 1)
Quarter: 2019Q2

REPORT INFORMATION
  Report Type: Spontaneous
  Country: CA (occurrence: CA)
  Receive Date: 20190522
  Receipt Date: 20190522
  Transmission Date: 20190711
  Serious: Yes (Hospitalization, Other)
  Sender: FDA-Public Use
  Company Number: CA-AUROBINDO-AUR-APL-2019-028277

PATIENT

DRUGS (10)
  1. GABAPENTIN. [Suspect]
     Active Substance: GABAPENTIN
     Indication: PAIN
     Dosage: 600 MILLIGRAM, 3 TIMES A DAY
     Route: 065
  2. APO-IBUPROFEN [Suspect]
     Active Substance: IBUPROFEN
     Indication: FIBROMYALGIA
     Dosage: UNK
     Route: 065
  3. HYDROMORPHONE [Suspect]
     Active Substance: HYDROMORPHONE
     Indication: PAIN MANAGEMENT
     Dosage: 65 MILLIGRAM
     Route: 048
  4. APO-IBUPROFEN [Suspect]
     Active Substance: IBUPROFEN
     Indication: NEUROPATHY PERIPHERAL
     Dosage: UNK
     Route: 065
  5. APO-OXYCODONE/ACETAMINOPHEN [Suspect]
     Active Substance: ACETAMINOPHEN\OXYCODONE HYDROCHLORIDE
     Indication: PAIN
     Dosage: 120 MILLIGRAM, ONCE A DAY
     Route: 048
  6. APO-IBUPROFEN [Suspect]
     Active Substance: IBUPROFEN
     Indication: PAIN
     Dosage: UNK
     Route: 065
  7. APO-OXYCODONE/ACETAMINOPHEN [Suspect]
     Active Substance: ACETAMINOPHEN\OXYCODONE HYDROCHLORIDE
     Indication: FIBROMYALGIA
  8. FENTANYL. [Suspect]
     Active Substance: FENTANYL
     Indication: PAIN MANAGEMENT
     Dosage: UNK
     Route: 065
  9. NABILONE [Suspect]
     Active Substance: NABILONE
     Indication: MYALGIA
     Dosage: 1 MILLIGRAM, 3 TIMES A DAY
     Route: 065
  10. APO-OXYCODONE/ACETAMINOPHEN [Suspect]
     Active Substance: ACETAMINOPHEN\OXYCODONE HYDROCHLORIDE
     Indication: NEUROPATHY PERIPHERAL
     Dosage: UNK
     Route: 065

REACTIONS (7)
  - Duodenal ulcer haemorrhage [Recovered/Resolved]
  - Product use in unapproved indication [Recovered/Resolved]
  - Drug use disorder [Recovered/Resolved]
  - Drug ineffective [Recovered/Resolved]
  - Haematemesis [Recovered/Resolved]
  - Hyperaesthesia [Recovered/Resolved]
  - Withdrawal syndrome [Recovered/Resolved]
